FAERS Safety Report 16615028 (Version 1)
Quarter: 2019Q3

REPORT INFORMATION
  Report Type: Spontaneous
  Country: NL (occurrence: NL)
  Receive Date: 20190723
  Receipt Date: 20190723
  Transmission Date: 20191004
  Serious: Yes (Other)
  Sender: FDA-Public Use
  Company Number: NL-SA-2019SA192594

PATIENT
  Age: 67 Year
  Sex: Female

DRUGS (3)
  1. LEFLUNOMIDE. [Suspect]
     Active Substance: LEFLUNOMIDE
     Indication: RHEUMATOID ARTHRITIS
     Dosage: 20MG, 1X/D
     Route: 048
     Dates: start: 20171005, end: 20190603
  2. HYDROXYCHLOROQUINE [Concomitant]
     Active Substance: HYDROXYCHLOROQUINE
     Dosage: 200 MG, BID (200MG, 2X/D)
     Route: 048
     Dates: start: 20180607
  3. TRIAMCINOLON [TRIAMCINOLONE] [Concomitant]
     Dosage: 120 MG
     Route: 030
     Dates: start: 20190415, end: 20190418

REACTIONS (1)
  - Interstitial lung disease [Not Recovered/Not Resolved]

NARRATIVE: CASE EVENT DATE: 20190415
